FAERS Safety Report 25542003 (Version 1)
Quarter: 2025Q3

REPORT INFORMATION
  Report Type: Spontaneous
  Country: US (occurrence: US)
  Receive Date: 20250711
  Receipt Date: 20250711
  Transmission Date: 20251020
  Serious: Yes (Death)
  Sender: ROCHE
  Company Number: US-ROCHE-10000331937

PATIENT
  Age: 69 Year
  Sex: Male

DRUGS (17)
  1. RITUXIMAB [Suspect]
     Active Substance: RITUXIMAB
     Indication: Chronic lymphocytic leukaemia
     Route: 042
     Dates: start: 202305, end: 202309
  2. VENCLEXTA [Concomitant]
     Active Substance: VENETOCLAX
  3. ALLOPURINOL [Concomitant]
     Active Substance: ALLOPURINOL
  4. ACYCLOVIR [Concomitant]
     Active Substance: ACYCLOVIR
  5. IBRUTINIB [Concomitant]
     Active Substance: IBRUTINIB
     Dates: start: 202007, end: 202305
  6. GAZYVA [Concomitant]
     Active Substance: OBINUTUZUMAB
     Dates: start: 201603, end: 201607
  7. OXYCODONE [Concomitant]
     Active Substance: OXYCODONE
  8. IBUPROFEN [Concomitant]
     Active Substance: IBUPROFEN
  9. ACETAMINOPHEN [Concomitant]
     Active Substance: ACETAMINOPHEN
  10. ATORVASTATIN [Concomitant]
     Active Substance: ATORVASTATIN
  11. NITROGLYCERIN [Concomitant]
     Active Substance: NITROGLYCERIN
  12. DOXYCYCLINE [Concomitant]
     Active Substance: DOXYCYCLINE
  13. ROCEPHIN [Concomitant]
     Active Substance: CEFTRIAXONE SODIUM
  14. AZITHROMYCIN [Concomitant]
     Active Substance: AZITHROMYCIN
  15. LEVOFLOXACIN [Concomitant]
     Active Substance: LEVOFLOXACIN
  16. FUROSEMIDE [Concomitant]
     Active Substance: FUROSEMIDE
  17. LISINOPRIL [Concomitant]
     Active Substance: LISINOPRIL

REACTIONS (3)
  - Orthopox virus infection [Fatal]
  - Staphylococcal infection [Unknown]
  - COVID-19 [Unknown]
